FAERS Safety Report 21791569 (Version 1)
Quarter: 2022Q4

REPORT INFORMATION
  Report Type: Spontaneous
  Country: US (occurrence: US)
  Receive Date: 20221228
  Receipt Date: 20221228
  Transmission Date: 20230112
  Serious: Yes (Hospitalization, Other)
  Sender: FDA-Public Use
  Company Number: US-JNJFOC-20221247322

PATIENT
  Sex: Male

DRUGS (1)
  1. ZYTIGA [Suspect]
     Active Substance: ABIRATERONE ACETATE
     Indication: Prostate cancer
     Route: 048
     Dates: end: 202211

REACTIONS (5)
  - Sepsis [Unknown]
  - Necrosis [Not Recovered/Not Resolved]
  - Obstruction [Unknown]
  - Radiotherapy to prostate [Unknown]
  - Cystitis [Unknown]
